FAERS Safety Report 17284034 (Version 1)
Quarter: 2020Q1

REPORT INFORMATION
  Report Type: Spontaneous
  Country: US (occurrence: US)
  Receive Date: 20200117
  Receipt Date: 20200117
  Transmission Date: 20200409
  Serious: No
  Sender: FDA-Public Use
  Company Number: US-SUNOVION-2020SUN000091

PATIENT
  Sex: Male

DRUGS (1)
  1. LATUDA [Suspect]
     Active Substance: LURASIDONE HYDROCHLORIDE
     Dosage: 80 MG, QD
     Route: 048

REACTIONS (5)
  - Fatigue [Not Recovered/Not Resolved]
  - Restlessness [Recovered/Resolved]
  - Restless legs syndrome [Recovered/Resolved]
  - Ear pain [Recovered/Resolved]
  - Emotional distress [Recovered/Resolved]
